FAERS Safety Report 4301958-1 (Version None)
Quarter: 2004Q1

REPORT INFORMATION
  Report Type: 
  Country: None (occurrence: None)
  Receive Date: 20040220
  Receipt Date: 20040218
  Transmission Date: 20041129
  Serious: Yes (Other)
  Sender: FDA-Public Use
  Company Number: 200310713BCC

PATIENT
  Age: 47 Year
  Sex: Male
  Weight: 113.3993 kg

DRUGS (1)
  1. NEO SYNEPHRINE REGULAR STRENGTH DROPS (PHENYLEPHRINE HYDROCHLORIDE) [Suspect]
     Indication: NASAL CONGESTION
     Dosage: NASAL
     Route: 045

REACTIONS (2)
  - DRUG DEPENDENCE [None]
  - NASAL CONGESTION [None]
